FAERS Safety Report 7420640-5 (Version None)
Quarter: 2011Q2

REPORT INFORMATION
  Report Type: 
  Country: None (occurrence: None)
  Receive Date: 20110408
  Receipt Date: 20110324
  Transmission Date: 20111010
  Serious: Yes (Hospitalization)
  Sender: FDA-Public Use
  Company Number: THQ2011A01688

PATIENT
  Age: 41 Year
  Sex: Male

DRUGS (2)
  1. LANTUS [Concomitant]
  2. ACTOS [Suspect]
     Indication: TYPE 2 DIABETES MELLITUS
     Dosage: 30 MG PER ORAL
     Route: 048
     Dates: start: 20100301, end: 20110301

REACTIONS (2)
  - BLADDER CANCER [None]
  - URINARY BLADDER POLYP [None]
